FAERS Safety Report 14497541 (Version 2)
Quarter: 2018Q1

REPORT INFORMATION
  Report Type: Spontaneous
  Country: ES (occurrence: ES)
  Receive Date: 20180207
  Receipt Date: 20180221
  Transmission Date: 20180509
  Serious: Yes (Other)
  Sender: FDA-Public Use
  Company Number: ES-ASTELLAS-2018US006575

PATIENT
  Age: 31 Year
  Sex: Male

DRUGS (1)
  1. MYCAMINE [Suspect]
     Active Substance: MICAFUNGIN SODIUM
     Indication: SCEDOSPORIUM INFECTION
     Route: 042

REACTIONS (2)
  - Aspergillus infection [Recovered/Resolved]
  - Lung transplant rejection [Unknown]
